FAERS Safety Report 9408700 (Version 1)
Quarter: 2013Q3

REPORT INFORMATION
  Report Type: Spontaneous
  Country: BR (occurrence: BR)
  Receive Date: 20130712
  Receipt Date: 20130712
  Transmission Date: 20140515
  Serious: Yes (Hospitalization)
  Sender: FDA-Public Use
  Company Number: BR-PFIZER INC-2013203604

PATIENT
  Age: 63 Year
  Sex: Male

DRUGS (1)
  1. CELEBRA [Suspect]
     Indication: SURGERY
     Dosage: 200 MG, 2X/DAY (EVERY 12 HOURS)
     Route: 048
     Dates: start: 20120709

REACTIONS (1)
  - Neoplasm [Unknown]
